APPROVED DRUG PRODUCT: FENOFIBRATE (MICRONIZED)
Active Ingredient: FENOFIBRATE
Strength: 200MG
Dosage Form/Route: CAPSULE;ORAL
Application: A210705 | Product #003 | TE Code: AB
Applicant: AJANTA PHARMA LTD
Approved: Sep 10, 2018 | RLD: No | RS: Yes | Type: RX